FAERS Safety Report 16030262 (Version 3)
Quarter: 2019Q2

REPORT INFORMATION
  Report Type: Report from Study
  Country: JP (occurrence: JP)
  Receive Date: 20190304
  Receipt Date: 20190618
  Transmission Date: 20190711
  Serious: Yes (Hospitalization)
  Sender: FDA-Public Use
  Company Number: JP-ACTELION-A-CH2019-186884

PATIENT
  Age: 27 Year
  Sex: Female

DRUGS (15)
  1. ACETAMINOPHEN. [Concomitant]
     Active Substance: ACETAMINOPHEN
  2. LUNABELL [Concomitant]
     Active Substance: ETHINYL ESTRADIOL\NORETHINDRONE
  3. SODIUM RABEPRAZOLE [Concomitant]
     Active Substance: RABEPRAZOLE SODIUM
  4. PREGABALIN. [Concomitant]
     Active Substance: PREGABALIN
  5. MECOBALAMIN [Concomitant]
     Active Substance: METHYLCOBALAMIN
  6. FORTEO [Concomitant]
     Active Substance: TERIPARATIDE
  7. TRAMCET [Concomitant]
     Active Substance: ACETAMINOPHEN\TRAMADOL
  8. AZATHIOPRIN [Concomitant]
     Active Substance: AZATHIOPRINE
  9. FERROUS SODIUM CITRATE [Concomitant]
     Active Substance: SODIUM FERROUS CITRATE
  10. ALPROSTADIL. [Concomitant]
     Active Substance: ALPROSTADIL
  11. TOCOPHEROL [Concomitant]
     Active Substance: TOCOPHEROL
  12. OPSUMIT [Suspect]
     Active Substance: MACITENTAN
     Indication: PULMONARY ARTERIAL HYPERTENSION
     Dosage: 10 MG, QD
     Route: 048
     Dates: start: 20180206
  13. PREDNISOLONE. [Suspect]
     Active Substance: PREDNISOLONE
     Indication: SYSTEMIC LUPUS ERYTHEMATOSUS
     Dosage: 20 MG, BID
     Route: 048
  14. FOLIC ACID. [Concomitant]
     Active Substance: FOLIC ACID
  15. SILDENAFIL CITRATE. [Concomitant]
     Active Substance: SILDENAFIL CITRATE

REACTIONS (4)
  - Peripheral vascular disorder [Recovering/Resolving]
  - Concomitant disease aggravated [Recovered/Resolved]
  - Cellulitis [Recovered/Resolved]
  - Fracture [Recovered/Resolved]

NARRATIVE: CASE EVENT DATE: 20180206
